FAERS Safety Report 11692721 (Version 1)
Quarter: 2015Q4

REPORT INFORMATION
  Report Type: Other
  Country: US (occurrence: US)
  Receive Date: 20151103
  Receipt Date: 20151103
  Transmission Date: 20160304
  Serious: No
  Sender: FDA-Public Use
  Company Number: US-ENDO PHARMACEUTICALS INC.-VANT20140032

PATIENT
  Sex: Male
  Weight: 57 kg

DRUGS (3)
  1. ZOLOFT [Concomitant]
     Active Substance: SERTRALINE HYDROCHLORIDE
     Indication: PRODUCT USED FOR UNKNOWN INDICATION
  2. VANTAS [Suspect]
     Active Substance: HISTRELIN ACETATE
     Indication: ENDOCRINE DISORDER
     Route: 065
     Dates: start: 20141013, end: 2014
  3. ESTROGEN [Concomitant]
     Active Substance: ESTRONE\SUS SCROFA OVARY
     Indication: PRODUCT USED FOR UNKNOWN INDICATION

REACTIONS (5)
  - Device kink [Recovered/Resolved]
  - Product use issue [Recovered/Resolved]
  - Implant site irritation [Recovered/Resolved]
  - Device expulsion [Recovered/Resolved]
  - Implant site pain [Recovered/Resolved]

NARRATIVE: CASE EVENT DATE: 2014
